FAERS Safety Report 16820697 (Version 1)
Quarter: 2019Q3

REPORT INFORMATION
  Report Type: Other
  Country: RO (occurrence: RO)
  Receive Date: 20190918
  Receipt Date: 20190918
  Transmission Date: 20191005
  Serious: Yes (Hospitalization)
  Sender: FDA-Public Use
  Company Number: RO-CELLTRION INC.-2019RO024688

PATIENT

DRUGS (3)
  1. TRASTUZUMAB (UNKNOWN) [Suspect]
     Active Substance: TRASTUZUMAB
     Indication: BREAST CANCER
     Dosage: 600 MG, 3/WEEK
     Route: 065
     Dates: start: 201904
  2. CARBOPLATIN. [Suspect]
     Active Substance: CARBOPLATIN
     Indication: BREAST CANCER
     Dosage: UNK
     Route: 065
     Dates: start: 201904
  3. DOCETAXEL. [Concomitant]
     Active Substance: DOCETAXEL
     Indication: BREAST CANCER
     Dosage: UNK
     Route: 065
     Dates: start: 201904

REACTIONS (5)
  - Malaise [Recovered/Resolved]
  - Hypotension [Recovered/Resolved]
  - Fatigue [Not Recovered/Not Resolved]
  - Asthenia [Recovered/Resolved]
  - Product use issue [Unknown]
